FAERS Safety Report 8204735-4 (Version None)
Quarter: 2012Q1

REPORT INFORMATION
  Report Type: 
  Country: None (occurrence: None)
  Receive Date: 20120313
  Receipt Date: 20120229
  Transmission Date: 20120608
  Serious: Yes (Hospitalization, Other)
  Sender: FDA-Public Use
  Company Number: US-ELI_LILLY_AND_COMPANY-US201109003167

PATIENT
  Sex: Female

DRUGS (8)
  1. FORTEO [Suspect]
     Dosage: 20 UG, QD
  2. TOPOL [Concomitant]
  3. ASPIRIN [Concomitant]
     Dosage: 81 MG, UNK
  4. FORTEO [Suspect]
     Indication: OSTEOPOROSIS
     Dosage: 20 UG, QD
     Dates: start: 20110701
  5. FORTEO [Suspect]
     Dosage: 20 UG, QD
  6. VITAMIN D [Concomitant]
  7. NAPROSYN [Concomitant]
  8. SIMVASTATIN [Concomitant]

REACTIONS (9)
  - PARAESTHESIA [None]
  - LACRIMATION INCREASED [None]
  - ARTHRALGIA [None]
  - GALLBLADDER OPERATION [None]
  - HERNIA REPAIR [None]
  - PANCREATITIS [None]
  - ADVERSE EVENT [None]
  - CONTUSION [None]
  - MUSCLE SPASMS [None]
